FAERS Safety Report 7029011-7 (Version None)
Quarter: 2010Q4

REPORT INFORMATION
  Report Type: 
  Country: None (occurrence: None)
  Receive Date: 20101005
  Receipt Date: 20100929
  Transmission Date: 20110411
  Serious: Yes (Other)
  Sender: FDA-Public Use
  Company Number: A0884586A

PATIENT
  Sex: Female
  Weight: 64 kg

DRUGS (7)
  1. AVANDIA [Suspect]
     Indication: DIABETES MELLITUS
     Dosage: 4MG IN THE MORNING
     Route: 048
     Dates: start: 20060101
  2. SYNTHROID [Concomitant]
     Dosage: 88MCG IN THE MORNING
     Route: 048
     Dates: start: 20060101
  3. EVISTA [Concomitant]
     Dosage: 60MG IN THE MORNING
     Route: 048
     Dates: start: 20020101
  4. OMEPRAZOLE [Concomitant]
     Dosage: 1TAB IN THE MORNING
     Route: 048
     Dates: start: 20040101
  5. CLOPIDOGREL [Concomitant]
     Dosage: 75MG PER DAY
     Route: 048
  6. OSCAL [Concomitant]
     Dosage: 1TAB IN THE MORNING
     Route: 048
  7. ZYLORIC [Concomitant]
     Dosage: 100MG IN THE MORNING
     Route: 048

REACTIONS (1)
  - INFARCTION [None]
